FAERS Safety Report 6212125-9 (Version None)
Quarter: 2009Q2

REPORT INFORMATION
  Report Type: 
  Country: None (occurrence: None)
  Receive Date: 20090602
  Receipt Date: 20090525
  Transmission Date: 20091009
  Serious: Yes (Death)
  Sender: FDA-Public Use
  Company Number: PHHY2009JP13413

PATIENT
  Age: 75 Year
  Sex: Male

DRUGS (5)
  1. DIOVAN [Suspect]
     Dosage: 80 MG DAILY
     Route: 048
  2. ZYLORIC [Concomitant]
     Route: 048
  3. FLUVOXAMINE MALEATE [Concomitant]
     Route: 048
  4. EURODIN [Concomitant]
     Route: 048
  5. CARDENALIN [Concomitant]
     Route: 048

REACTIONS (4)
  - BONE MARROW FAILURE [None]
  - DECUBITUS ULCER [None]
  - INFECTION [None]
  - WHITE BLOOD CELL COUNT DECREASED [None]
